FAERS Safety Report 9338860 (Version 1)
Quarter: 2013Q2

REPORT INFORMATION
  Report Type: Spontaneous
  Country: US (occurrence: None)
  Receive Date: 20130606
  Receipt Date: 20130606
  Transmission Date: 20140414
  Serious: Yes (Hospitalization, Other)
  Sender: FDA-Public Use
  Company Number: None

PATIENT
  Sex: 0

DRUGS (1)
  1. SUPREP BOWEL PREP KIT [Suspect]
     Dosage: 6 OZ BOTTLE
     Dates: start: 20130425, end: 20130425

REACTIONS (6)
  - Malaise [None]
  - Thirst [None]
  - Dizziness [None]
  - Nausea [None]
  - Memory impairment [None]
  - Loss of consciousness [None]
